FAERS Safety Report 5866115-6 (Version None)
Quarter: 2008Q3

REPORT INFORMATION
  Report Type: 
  Country: None (occurrence: None)
  Receive Date: 20080829
  Receipt Date: 20080818
  Transmission Date: 20090109
  Serious: Yes (Other)
  Sender: FDA-Public Use
  Company Number: IS-PFIZER INC-2008067312

PATIENT
  Age: 71 Year
  Sex: Female

DRUGS (4)
  1. CHANTIX [Suspect]
     Indication: SMOKING CESSATION THERAPY
     Dates: start: 20080201, end: 20080801
  2. CHANTIX [Suspect]
  3. COZAAR [Concomitant]
     Indication: HYPERTENSION
  4. IMOVANE [Concomitant]
     Indication: INSOMNIA

REACTIONS (6)
  - BALANCE DISORDER [None]
  - FALL [None]
  - FATIGUE [None]
  - FEELING ABNORMAL [None]
  - NAUSEA [None]
  - UPPER LIMB FRACTURE [None]
